FAERS Safety Report 5650460-3 (Version None)
Quarter: 2008Q1

REPORT INFORMATION
  Report Type: 
  Country: None (occurrence: None)
  Receive Date: 20080304
  Receipt Date: 20080304
  Transmission Date: 20080703
  Serious: Yes (Hospitalization)
  Sender: FDA-Public Use
  Company Number: None

PATIENT
  Age: 37 Year
  Sex: Male
  Weight: 55.3388 kg

DRUGS (4)
  1. CHANTIX [Suspect]
     Indication: SMOKING CESSATION THERAPY
     Dosage: 1 1MG  2  PO
     Route: 048
     Dates: start: 20080116, end: 20080203
  2. PLAVX [Concomitant]
  3. XANX [Concomitant]
  4. VERTIGO MEDICATION [Concomitant]

REACTIONS (3)
  - CEREBRAL VENTRICLE DILATATION [None]
  - MUSCLE SPASMS [None]
  - TRANSIENT ISCHAEMIC ATTACK [None]
